FAERS Safety Report 15046509 (Version 1)
Quarter: 2018Q2

REPORT INFORMATION
  Report Type: Spontaneous
  Country: DE (occurrence: DE)
  Receive Date: 20180621
  Receipt Date: 20180621
  Transmission Date: 20180711
  Serious: Yes (Hospitalization)
  Sender: FDA-Public Use
  Company Number: DE-TEVA-2018-DE-911000

PATIENT
  Age: 74 Year
  Sex: Female

DRUGS (1)
  1. AMOXICILLIN. [Suspect]
     Active Substance: AMOXICILLIN
     Dosage: NK MG, NK
     Route: 065

REACTIONS (6)
  - Paraesthesia [Unknown]
  - Tachycardia [Unknown]
  - Hypotension [Unknown]
  - Malaise [Unknown]
  - Dyspnoea [Unknown]
  - Anaphylactic shock [Unknown]
